FAERS Safety Report 11904138 (Version 1)
Quarter: 2016Q1

REPORT INFORMATION
  Report Type: Report from Study
  Country: US (occurrence: US)
  Receive Date: 20160108
  Receipt Date: 20160108
  Transmission Date: 20160526
  Serious: No
  Sender: FDA-Public Use
  Company Number: US-ABBVIE-15P-163-1487484-00

PATIENT
  Sex: Female

DRUGS (1)
  1. VIEKIRA PAK [Suspect]
     Active Substance: DASABUVIR\OMBITASVIR\PARITAPREVIR\RITONAVIR
     Indication: HEPATITIS C
     Dosage: 2 PINK AND 1 BEIGE TABLET IN AM, 1 BEIGE TABLET IN PM
     Route: 048
     Dates: start: 20150916

REACTIONS (4)
  - Fatigue [Unknown]
  - Insomnia [Unknown]
  - Pruritus [Unknown]
  - Nausea [Unknown]
